FAERS Safety Report 5382387-9 (Version None)
Quarter: 2007Q3

REPORT INFORMATION
  Report Type: 
  Country: None (occurrence: None)
  Receive Date: 20070709
  Receipt Date: 20070702
  Transmission Date: 20080115
  Serious: Yes (Other)
  Sender: FDA-Public Use
  Company Number: HR-MERCK-0707HUN00004

PATIENT
  Age: 61 Year
  Sex: Female

DRUGS (6)
  1. ZOCOR [Suspect]
     Indication: HYPERLIPIDAEMIA
     Route: 048
  2. SANDIMMUNE [Concomitant]
     Route: 048
     Dates: start: 20041029
  3. SANDIMMUNE [Concomitant]
     Route: 048
     Dates: start: 20041029
  4. CELLCEPT [Concomitant]
     Route: 048
     Dates: start: 20041029
  5. DECORTIN [Concomitant]
     Route: 048
     Dates: start: 20041029
  6. ROCALTROL [Concomitant]
     Route: 048
     Dates: start: 20041020

REACTIONS (1)
  - MYOSITIS [None]
